FAERS Safety Report 7610599-X (Version None)
Quarter: 2011Q3

REPORT INFORMATION
  Report Type: 
  Country: None (occurrence: None)
  Receive Date: 20110715
  Receipt Date: 20110706
  Transmission Date: 20111222
  Serious: Yes (Other)
  Sender: FDA-Public Use
  Company Number: US-MYLANLABS-2011S1011362

PATIENT
  Age: 70 Year
  Sex: Female
  Weight: 89.36 kg

DRUGS (27)
  1. MICARDIS [Concomitant]
     Indication: BLOOD PRESSURE
  2. HYDROCHLOROTHIAZIDE [Concomitant]
     Indication: FLUID RETENTION
  3. PANTOPRAZOLE SODIUM [Concomitant]
     Indication: ABDOMINAL PAIN UPPER
  4. METAMUCIL-2 [Concomitant]
  5. DOMPERIDON /00498201/ [Concomitant]
  6. VITAMIN TAB [Concomitant]
  7. ADVAIR DISKUS 100/50 [Concomitant]
  8. ROPINIROLE [Concomitant]
  9. NASACORT [Concomitant]
     Route: 045
  10. VITAMIN D [Concomitant]
  11. TOPIRAMATE [Suspect]
     Route: 048
     Dates: start: 20101101, end: 20110501
  12. ACTONEL [Concomitant]
  13. VITAMIN B COMPLEX CAP [Concomitant]
  14. FLAXSEED [Concomitant]
  15. CALTRATE + D /00188401/ [Concomitant]
  16. TOPIRAMATE [Suspect]
     Indication: CONVULSION
     Route: 048
     Dates: start: 20101101, end: 20110501
  17. NASALCROM [Concomitant]
  18. ASCORBIC ACID [Concomitant]
  19. IPRATROPIUM BROMIDE AND ALBUTEROL SULFATE [Concomitant]
  20. SODIUM CHLORIDE [Concomitant]
  21. TOPIRAMATE [Suspect]
     Route: 048
     Dates: start: 20110501, end: 20110525
  22. ATIVAN [Suspect]
     Route: 048
     Dates: start: 20110501, end: 20110508
  23. ASPIRIN [Concomitant]
     Indication: TRANSIENT ISCHAEMIC ATTACK
  24. VITAMIN E [Concomitant]
  25. TOPIRAMATE [Suspect]
     Route: 048
     Dates: start: 20110501, end: 20110525
  26. ATIVAN [Suspect]
     Indication: CONVULSION
     Route: 048
     Dates: end: 20110501
  27. FEXOFENADINE [Concomitant]
     Indication: MULTIPLE ALLERGIES

REACTIONS (11)
  - GAIT DISTURBANCE [None]
  - BALANCE DISORDER [None]
  - MOBILITY DECREASED [None]
  - CONFUSIONAL STATE [None]
  - PRODUCT SUBSTITUTION ISSUE [None]
  - DYSARTHRIA [None]
  - COUGH [None]
  - DRUG INEFFECTIVE [None]
  - SPEECH DISORDER [None]
  - CONVULSION [None]
  - GRUNTING [None]
